FAERS Safety Report 19685817 (Version 2)
Quarter: 2021Q3

REPORT INFORMATION
  Report Type: Other
  Country: DE (occurrence: DE)
  Receive Date: 20210811
  Receipt Date: 20210902
  Transmission Date: 20211014
  Serious: Yes (Other)
  Sender: FDA-Public Use
  Company Number: DE-ROCHE-2653636

PATIENT
  Age: 25 Year
  Sex: Female

DRUGS (4)
  1. COMIRNATY [Suspect]
     Active Substance: TOZINAMERAN
     Indication: COVID-19 IMMUNISATION
     Dosage: SECOND DOSE: 09/JUN/2021
     Route: 065
     Dates: start: 20210519
  2. OCREVUS [Suspect]
     Active Substance: OCRELIZUMAB
     Route: 042
     Dates: start: 20210729
  3. OCREVUS [Suspect]
     Active Substance: OCRELIZUMAB
     Indication: RELAPSING-REMITTING MULTIPLE SCLEROSIS
     Route: 042
     Dates: start: 20200709
  4. OCREVUS [Suspect]
     Active Substance: OCRELIZUMAB
     Route: 042
     Dates: start: 20200723

REACTIONS (8)
  - SARS-CoV-2 antibody test positive [Not Recovered/Not Resolved]
  - Fatigue [Recovered/Resolved]
  - Nasopharyngitis [Recovered/Resolved]
  - Paraesthesia oral [Recovered/Resolved]
  - Multiple sclerosis relapse [Recovered/Resolved]
  - Cough [Not Recovered/Not Resolved]
  - Lip swelling [Recovered/Resolved]
  - Throat irritation [Recovered/Resolved]

NARRATIVE: CASE EVENT DATE: 20200709
